FAERS Safety Report 13270039 (Version 1)
Quarter: 2017Q1

REPORT INFORMATION
  Report Type: Spontaneous
  Country: JP (occurrence: JP)
  Receive Date: 20170224
  Receipt Date: 20170224
  Transmission Date: 20170428
  Serious: Yes (Other)
  Sender: FDA-Public Use
  Company Number: JP-PFIZER INC-2017081207

PATIENT
  Age: 74 Year
  Sex: Male

DRUGS (6)
  1. CYMBALTA [Concomitant]
     Active Substance: DULOXETINE HYDROCHLORIDE
     Dosage: 20 MG, DAILY
     Route: 048
     Dates: start: 20170130
  2. TOSUFLOXACIN [Concomitant]
     Active Substance: TOSUFLOXACIN TOSYLATE
     Dosage: 225 MG, DAILY
     Route: 048
     Dates: start: 20170130
  3. LYRICA [Suspect]
     Active Substance: PREGABALIN
     Dosage: 150 MG, DAILY
     Route: 048
     Dates: start: 20170130
  4. PONSTEL [Concomitant]
     Active Substance: MEFENAMIC ACID
     Dosage: 250 MG, DAILY
     Route: 048
     Dates: start: 20170130
  5. NEUROTROPIN [Concomitant]
     Active Substance: NEUROTROPIN
     Dosage: 8 IU, DAILY
     Route: 048
     Dates: start: 20170130
  6. DIAMOX SEQUELS [Concomitant]
     Active Substance: ACETAZOLAMIDE
     Dosage: 250 MG, DAILY
     Route: 048
     Dates: start: 20170130

REACTIONS (4)
  - Neck pain [Unknown]
  - Neck injury [Unknown]
  - Loss of consciousness [Unknown]
  - Road traffic accident [Unknown]
